FAERS Safety Report 7600334-3 (Version None)
Quarter: 2011Q2

REPORT INFORMATION
  Report Type: 
  Country: None (occurrence: None)
  Receive Date: 20110624
  Receipt Date: 20110519
  Transmission Date: 20111010
  Serious: Yes (Hospitalization)
  Sender: FDA-Public Use
  Company Number: SPV1-2011-00827

PATIENT
  Age: 9 Year
  Sex: Female

DRUGS (1)
  1. INTUNIV [Suspect]
     Indication: PRODUCT USED FOR UNKNOWN INDICATION
     Dosage: DRUG USE FOR UNKNOWN INDICATION

REACTIONS (2)
  - GRAND MAL CONVULSION [None]
  - OVERDOSE [None]
